FAERS Safety Report 8560723-X (Version None)
Quarter: 2012Q3

REPORT INFORMATION
  Report Type: 
  Country: None (occurrence: None)
  Receive Date: 20120802
  Receipt Date: 20120730
  Transmission Date: 20120928
  Serious: Yes (Other)
  Sender: FDA-Public Use
  Company Number: PHEH2012US014986

PATIENT
  Sex: Female

DRUGS (1)
  1. VIVELLE-DOT [Suspect]
     Dosage: 0.1 UKN, UNK
     Route: 062

REACTIONS (2)
  - PERIPHERAL VASCULAR DISORDER [None]
  - HYPOAESTHESIA [None]
